FAERS Safety Report 10675912 (Version 1)
Quarter: 2014Q4

REPORT INFORMATION
  Report Type: Spontaneous
  Country: DK (occurrence: DK)
  Receive Date: 20141225
  Receipt Date: 20141225
  Transmission Date: 20150529
  Serious: Yes (Hospitalization)
  Sender: FDA-Public Use
  Company Number: DK-AMGEN-DNKSP2014098862

PATIENT
  Age: 71 Year
  Sex: Male

DRUGS (1)
  1. XGEVA [Suspect]
     Active Substance: DENOSUMAB
     Indication: METASTASES TO BONE
     Dosage: 120 MG, UNK
     Route: 058
     Dates: start: 20131001

REACTIONS (2)
  - Osteonecrosis of jaw [Recovered/Resolved with Sequelae]
  - Sequestrectomy [Recovered/Resolved]

NARRATIVE: CASE EVENT DATE: 20140822
